FAERS Safety Report 12324535 (Version 1)
Quarter: 2016Q2

REPORT INFORMATION
  Report Type: Report from Study
  Country: US (occurrence: US)
  Receive Date: 20160502
  Receipt Date: 20160502
  Transmission Date: 20160815
  Serious: Yes (Hospitalization)
  Sender: FDA-Public Use
  Company Number: US-ABBVIE-15P-163-1466971-00

PATIENT
  Age: 56 Year
  Sex: Male
  Weight: 96.7 kg

DRUGS (4)
  1. ANDROGEL [Suspect]
     Active Substance: TESTOSTERONE
     Indication: HYPOGONADISM
     Dosage: 2 PUMPS DAILY
     Route: 061
     Dates: start: 2010
  2. ASPIRIN. [Concomitant]
     Active Substance: ASPIRIN
     Indication: PRODUCT USED FOR UNKNOWN INDICATION
  3. NAPROSYN [Concomitant]
     Active Substance: NAPROXEN
     Indication: ARTHRITIS
  4. LEVOTHYROXINE. [Concomitant]
     Active Substance: LEVOTHYROXINE
     Indication: HYPOTHYROIDISM

REACTIONS (1)
  - Type 2 diabetes mellitus [Recovering/Resolving]

NARRATIVE: CASE EVENT DATE: 20150719
